FAERS Safety Report 14333205 (Version 2)
Quarter: 2018Q1

REPORT INFORMATION
  Report Type: Spontaneous
  Country: US (occurrence: US)
  Receive Date: 20171228
  Receipt Date: 20180119
  Transmission Date: 20180509
  Serious: Yes (Life-Threatening, Hospitalization)
  Sender: FDA-Public Use
  Company Number: US-TEVA-2017-US-839724

PATIENT
  Age: 24 Year
  Sex: Male
  Weight: 91 kg

DRUGS (4)
  1. FOLINIC ACID [Concomitant]
     Active Substance: LEUCOVORIN
     Indication: PRODUCT USED FOR UNKNOWN INDICATION
     Dosage: CONTINUED UNTIL PLASMA METHOTREXATE CONCENTRATION AT 72 HOURS POST DOSING WAS LESS THAN 0.1 MICRO...
     Route: 042
     Dates: start: 201301
  2. SODIUM BICARBONATE. [Concomitant]
     Active Substance: SODIUM BICARBONATE
     Indication: URINE ALKALINISATION THERAPY
     Route: 048
     Dates: start: 201301
  3. METHOTREXATE. [Suspect]
     Active Substance: METHOTREXATE
     Indication: ACUTE LYMPHOCYTIC LEUKAEMIA
     Dosage: 5G/ME2 FOR A TOTAL OF 10G
     Route: 042
     Dates: start: 201301
  4. FOLINIC ACID [Concomitant]
     Active Substance: LEUCOVORIN
     Indication: PRODUCT USED FOR UNKNOWN INDICATION
     Dosage: 50 MG 30 HOURS AFTER INITIATION OF METHOTREXATE
     Route: 042
     Dates: start: 201301

REACTIONS (1)
  - Toxic encephalopathy [Recovered/Resolved]

NARRATIVE: CASE EVENT DATE: 2013
